FAERS Safety Report 5193426-2 (Version None)
Quarter: 2006Q4

REPORT INFORMATION
  Report Type: 
  Country: None (occurrence: None)
  Receive Date: 20061228
  Receipt Date: 20060419
  Transmission Date: 20070319
  Serious: No
  Sender: FDA-Public Use
  Company Number: US-GLAXOSMITHKLINE-A0602447A

PATIENT
  Age: 71 Year
  Sex: Male

DRUGS (3)
  1. FLONASE [Suspect]
     Indication: EAR DISORDER
     Dosage: 4SPR PER DAY
     Route: 045
     Dates: start: 20060413
  2. SYNTHROID [Concomitant]
  3. ASPIRIN [Concomitant]

REACTIONS (2)
  - INCREASED UPPER AIRWAY SECRETION [None]
  - PHARYNGOLARYNGEAL PAIN [None]
